FAERS Safety Report 8352207-9 (Version None)
Quarter: 2012Q2

REPORT INFORMATION
  Report Type: 
  Country: None (occurrence: None)
  Receive Date: 20120511
  Receipt Date: 20120508
  Transmission Date: 20120825
  Serious: Yes (Other)
  Sender: FDA-Public Use
  Company Number: US-PFIZER INC-2012103938

PATIENT
  Sex: Female

DRUGS (1)
  1. ZOLOFT [Suspect]
     Dosage: UNK
     Dates: start: 20111209

REACTIONS (5)
  - SUICIDAL BEHAVIOUR [None]
  - DIARRHOEA [None]
  - SUICIDAL IDEATION [None]
  - ANXIETY [None]
  - DEPRESSION [None]
